FAERS Safety Report 7954324-1 (Version None)
Quarter: 2011Q4

REPORT INFORMATION
  Report Type: 
  Country: None (occurrence: None)
  Receive Date: 20111202
  Receipt Date: 20111130
  Transmission Date: 20120403
  Serious: Yes (Hospitalization)
  Sender: FDA-Public Use
  Company Number: DE-BAYER-2011-114820

PATIENT
  Age: 69 Year
  Sex: Male

DRUGS (10)
  1. ALLOPURINOL [Concomitant]
     Dosage: 100 MG, QD
  2. FUROSEMIDE [Concomitant]
     Dosage: 20 MG, QD
  3. TORSEMIDE [Concomitant]
     Dosage: 2.5 MG, QD
  4. TAMSULOSIN HCL [Concomitant]
     Dosage: 0.4 MG, QD
  5. EXFORGE [Concomitant]
     Dosage: 1 DF, BID
  6. PANTOPRAZOLE SODIUM [Concomitant]
     Dosage: 40 MG, QD
  7. ASPIRIN [Concomitant]
     Dosage: 100 MG, QD
  8. SORAFENIB (RAF KINASE INHIBITOR) [Suspect]
     Indication: METASTATIC RENAL CELL CARCINOMA
     Dosage: UNK
     Dates: start: 20110713
  9. SIMVASTATIN [Concomitant]
     Dosage: 20 MG, QD
  10. METFORMIN HCL [Concomitant]
     Dosage: 1000 MG, QD

REACTIONS (1)
  - BASAL CELL CARCINOMA [None]
